FAERS Safety Report 6292276-3 (Version None)
Quarter: 2009Q3

REPORT INFORMATION
  Report Type: 
  Country: None (occurrence: None)
  Receive Date: 20090731
  Receipt Date: 20090720
  Transmission Date: 20100115
  Serious: Yes (Other)
  Sender: FDA-Public Use
  Company Number: US-SANOFI-SYNTHELABO-A03200903167

PATIENT
  Sex: Male

DRUGS (3)
  1. AMBIEN CR [Suspect]
     Indication: SLEEP DISORDER
     Dosage: UNK
     Route: 048
     Dates: end: 20070101
  2. ZOLOFT [Suspect]
     Indication: DRUG USE FOR UNKNOWN INDICATION
     Dosage: UNK
     Route: 065
     Dates: start: 20020101, end: 20070101
  3. ZOLOFT [Suspect]
     Dosage: UNK
     Route: 065

REACTIONS (2)
  - HOMICIDE [None]
  - WRONG TECHNIQUE IN DRUG USAGE PROCESS [None]
